FAERS Safety Report 5792745-6 (Version None)
Quarter: 2008Q2

REPORT INFORMATION
  Report Type: 
  Country: None (occurrence: None)
  Receive Date: 20080624
  Receipt Date: 20080610
  Transmission Date: 20081010
  Serious: Yes (Hospitalization)
  Sender: FDA-Public Use
  Company Number: 2008AL005272

PATIENT
  Age: 86 Year
  Sex: Female
  Weight: 61.2356 kg

DRUGS (5)
  1. DIGOXIN [Suspect]
     Indication: ARRHYTHMIA
     Dosage: DAILY PO
     Route: 048
  2. GLIPIZIDE [Concomitant]
  3. HYDROCHLOROTHIAZIDE [Concomitant]
  4. MIRALAX [Concomitant]
  5. ASPIRIN [Concomitant]

REACTIONS (6)
  - ANOREXIA [None]
  - ASTHENIA [None]
  - DISORIENTATION [None]
  - DYSPNOEA [None]
  - FALL [None]
  - MYOCARDIAL INFARCTION [None]
